FAERS Safety Report 12590362 (Version 1)
Quarter: 2016Q3

REPORT INFORMATION
  Report Type: Spontaneous
  Country: ZA (occurrence: ZA)
  Receive Date: 20160725
  Receipt Date: 20160725
  Transmission Date: 20161109
  Serious: Yes (Hospitalization)
  Sender: FDA-Public Use
  Company Number: ZA-PURDUE-GBR-2016-0039161

PATIENT
  Age: 66 Year
  Sex: Female
  Weight: 47.8 kg

DRUGS (1)
  1. TARGINACT [Suspect]
     Active Substance: NALOXONE HYDROCHLORIDE\OXYCODONE HYDROCHLORIDE
     Indication: CANCER PAIN
     Dosage: 40MG/20MG, 2 X DAILY
     Route: 048
     Dates: start: 20160710, end: 20160712

REACTIONS (10)
  - Hypertension [Recovered/Resolved]
  - Tachycardia [Recovered/Resolved]
  - Tonic clonic movements [Recovered/Resolved]
  - Diarrhoea [Recovered/Resolved]
  - Anxiety [Recovered/Resolved]
  - Restlessness [Recovered/Resolved]
  - Vomiting [Recovered/Resolved]
  - Drug withdrawal syndrome [Recovered/Resolved]
  - Myoclonus [Recovered/Resolved]
  - Muscle twitching [Recovered/Resolved]

NARRATIVE: CASE EVENT DATE: 201607
